FAERS Safety Report 16631442 (Version 1)
Quarter: 2019Q3

REPORT INFORMATION
  Report Type: Spontaneous
  Country: DE (occurrence: DE)
  Receive Date: 20190725
  Receipt Date: 20190725
  Transmission Date: 20191004
  Serious: Yes (Death, Hospitalization)
  Sender: FDA-Public Use
  Company Number: DE-PFIZER INC-2019311896

PATIENT
  Age: 57 Year
  Sex: Male
  Weight: 71 kg

DRUGS (9)
  1. PANTOPRAZOLE [Concomitant]
     Active Substance: PANTOPRAZOLE
     Dosage: 40 MG, 1X/DAY (1-0-0-0)
     Route: 048
  2. DEXAMETHASONE. [Concomitant]
     Active Substance: DEXAMETHASONE
     Dosage: 8 MG, SCHEME
     Route: 048
  3. PANGROL [PANCREATIN] [Concomitant]
     Dosage: 40000 IU, UNK (SCHEME)
     Route: 048
  4. NEUPOGEN [Concomitant]
     Active Substance: FILGRASTIM
     Dosage: 48 IU, UNK
     Route: 058
  5. ONDANSETRON [Concomitant]
     Active Substance: ONDANSETRON
     Dosage: 8 MG, UNK (SCHEME)
     Route: 048
  6. POTASSIUM [Concomitant]
     Active Substance: POTASSIUM
     Dosage: UNK UNK, 2X/DAY (1 CAPSULE ACCORDING TO POTASSIUM VALUE, 1-1-0-0)
     Route: 048
  7. LOPERAMIDE [Concomitant]
     Active Substance: LOPERAMIDE
     Dosage: 2 MG, AS NEEDED
     Route: 048
  8. PANGROL 25000 [Concomitant]
     Dosage: 25000 IU, UNK (SCHEME)
     Route: 048
  9. GEMCITABINE HYDROCHLORIDE. [Suspect]
     Active Substance: GEMCITABINE HYDROCHLORIDE
     Dosage: UNK
     Route: 042

REACTIONS (6)
  - Productive cough [Unknown]
  - Cough [Unknown]
  - Flank pain [Unknown]
  - General physical health deterioration [Unknown]
  - Dehydration [Unknown]
  - Pyrexia [Unknown]
